FAERS Safety Report 6636997-9 (Version None)
Quarter: 2010Q1

REPORT INFORMATION
  Report Type: 
  Country: None (occurrence: None)
  Receive Date: 20100316
  Receipt Date: 20100302
  Transmission Date: 20100710
  Serious: Yes (Death, Other)
  Sender: FDA-Public Use
  Company Number: PL-PFIZER INC-2010027323

PATIENT
  Age: 30 Year
  Sex: Male

DRUGS (4)
  1. LYRICA [Suspect]
     Indication: NEURALGIA
     Dosage: 75 MG, 1X/DAY
     Route: 048
     Dates: start: 20091101, end: 20091101
  2. DURAGESIC-100 [Concomitant]
     Dosage: 100 MCG/H, EVERY 3 DAYS, PLASTERS
     Dates: start: 20091001, end: 20100101
  3. ZOFRAN [Concomitant]
     Dosage: 8 MG, EVERY 8H
  4. METOCLOPRAMIDE [Concomitant]
     Dosage: UNK

REACTIONS (2)
  - DIARRHOEA HAEMORRHAGIC [None]
  - MALIGNANT NEOPLASM PROGRESSION [None]
